FAERS Safety Report 8048918-5 (Version None)
Quarter: 2012Q1

REPORT INFORMATION
  Report Type: 
  Country: None (occurrence: None)
  Receive Date: 20120117
  Receipt Date: 20120110
  Transmission Date: 20120608
  Serious: Yes (Death, Life-Threatening, Other)
  Sender: FDA-Public Use
  Company Number: JP-PFIZER INC-2011287281

PATIENT
  Age: 71 Year
  Sex: Male
  Weight: 46 kg

DRUGS (13)
  1. FOLIC ACID [Concomitant]
     Indication: RHEUMATOID ARTHRITIS
     Dosage: 5 MG, WEEKLY
     Route: 048
     Dates: end: 20100721
  2. TIOSTAR [Concomitant]
     Indication: GASTRIC ULCER
     Dosage: 20 MG, 2X/DAY
     Route: 048
     Dates: end: 20100721
  3. FERROUS CITRATE [Concomitant]
     Indication: ANAEMIA
     Dosage: 100 MG, 1X/DAY
     Route: 048
     Dates: end: 20100721
  4. METHOTREXATE [Suspect]
     Indication: RHEUMATOID ARTHRITIS
     Dosage: 6 MG, WEEKLY
     Route: 048
     Dates: start: 20100514, end: 20100721
  5. PREDNISOLONE [Suspect]
     Indication: RHEUMATOID ARTHRITIS
     Dosage: 7.5 MG/DAY
     Route: 048
     Dates: start: 19910101, end: 20100721
  6. CALFINA [Concomitant]
     Indication: OSTEOPOROSIS
     Dosage: 0.5 UG, 2X/DAY
     Dates: end: 20100721
  7. MUCOSTA [Concomitant]
     Indication: GASTRIC ULCER
     Dosage: 100 MG, 2X/DAY
     Dates: end: 20100721
  8. ACTONEL [Concomitant]
     Indication: OSTEOPOROSIS
     Dosage: 17.5 MG, WEEKLY
     Route: 048
     Dates: end: 20100721
  9. LOXOPROFEN SODIUM [Concomitant]
     Indication: RHEUMATOID ARTHRITIS
     Dosage: 60 MG, 2X/DAY
     Route: 048
     Dates: end: 20110721
  10. RHEUMATREX [Concomitant]
     Indication: RHEUMATOID ARTHRITIS
     Dosage: 6 MG, WEEKLY
     Route: 048
     Dates: end: 20100513
  11. AZULFIDINE [Suspect]
     Indication: RHEUMATOID ARTHRITIS
     Dosage: 1000 MG/DAY
     Route: 048
     Dates: start: 20100101, end: 20100701
  12. OLMESARTAN MEDOXOMIL [Concomitant]
     Indication: HYPERTENSION
     Dosage: 20 MG, 2X/DAY
     Route: 048
     Dates: end: 20100721
  13. TOLEDOMIN [Concomitant]
     Indication: DEPRESSION
     Dosage: 15 MG, 2X/DAY
     Route: 048
     Dates: end: 20100721

REACTIONS (3)
  - LUNG ABSCESS [None]
  - PSEUDOMONAS INFECTION [None]
  - IMMUNOSUPPRESSION [None]
